FAERS Safety Report 16883673 (Version 1)
Quarter: 2019Q4

REPORT INFORMATION
  Report Type: Spontaneous
  Country: ES (occurrence: ES)
  Receive Date: 20191004
  Receipt Date: 20191004
  Transmission Date: 20200122
  Serious: Yes (Hospitalization)
  Sender: FDA-Public Use
  Company Number: ES-TEVA-2019-ES-1117604

PATIENT
  Age: 43 Year
  Sex: Female

DRUGS (1)
  1. NAPROXENO (2002A) [Suspect]
     Active Substance: NAPROXEN
     Indication: ARTHRALGIA
     Dates: start: 20190806, end: 20190806

REACTIONS (1)
  - Anaphylactic shock [Recovered/Resolved]

NARRATIVE: CASE EVENT DATE: 20190806
